FAERS Safety Report 26071352 (Version 1)
Quarter: 2025Q4

REPORT INFORMATION
  Report Type: Spontaneous
  Country: US (occurrence: None)
  Receive Date: 20251120
  Receipt Date: 20251120
  Transmission Date: 20260118
  Serious: Yes (Other)
  Sender: FDA-CTU
  Company Number: None

PATIENT
  Sex: Female

DRUGS (11)
  1. EVEROLIMUS [Suspect]
     Active Substance: EVEROLIMUS
     Indication: Breast cancer female
     Route: 048
     Dates: start: 20250417
  2. ALBUTEROL POW SULFATE [Concomitant]
  3. DEXAMETHASONE [Concomitant]
     Active Substance: DEXAMETHASONE
  4. FASLODEX INJ 250/5ML [Concomitant]
  5. IBUPROFEN [Concomitant]
     Active Substance: IBUPROFEN
  6. LETROZOLE [Concomitant]
     Active Substance: LETROZOLE
  7. LIDOCAINE SOL 2% VISC [Concomitant]
  8. MORPHINE SUL TAB 15MG ER [Concomitant]
  9. MOVANTIK TAB 25MG [Concomitant]
  10. OMEPRAZOLE [Concomitant]
     Active Substance: OMEPRAZOLE
  11. ONDANSETRON TAB 8MG ODT [Concomitant]

REACTIONS (1)
  - Antibiotic therapy [None]
